FAERS Safety Report 17219068 (Version 1)
Quarter: 2019Q4

REPORT INFORMATION
  Report Type: Spontaneous
  Country: DE (occurrence: DE)
  Receive Date: 20191231
  Receipt Date: 20191231
  Transmission Date: 20200122
  Serious: Yes (Other)
  Sender: FDA-Public Use
  Company Number: DE-SAMSUNG BIOEPIS-SB-2019-39073

PATIENT
  Age: 60 Year
  Sex: Male

DRUGS (11)
  1. BICNU [Suspect]
     Active Substance: CARMUSTINE
     Indication: MANTLE CELL LYMPHOMA STAGE IV
     Dosage: RECEIVED THREE CYCLES; PART OF HIGH-DOSE BEAM REGIMEN, UNKNOWN
     Route: 065
  2. CYTARABINE. [Suspect]
     Active Substance: CYTARABINE
     Indication: MANTLE CELL LYMPHOMA STAGE IV
     Dosage: RECEIVED THREE CYCLES; PART OF HIGH-DOSE BEAM REGIMEN, UNKNOWN
     Route: 065
  3. RITUXIMAB. [Suspect]
     Active Substance: RITUXIMAB
     Dosage: 1000 MG/M2 EVERY 8 WEEKS (MAINTENANCE THERAPY)
     Route: 065
  4. CYCLOPHOSPHAMIDE. [Suspect]
     Active Substance: CYCLOPHOSPHAMIDE
     Indication: MANTLE CELL LYMPHOMA STAGE IV
     Dosage: RECEIVED THREE CYCLES; PART OF MAXI-CHOP REGIMEN, UNKNOWN
     Route: 065
  5. MELPHALAN. [Suspect]
     Active Substance: MELPHALAN
     Indication: MANTLE CELL LYMPHOMA STAGE IV
     Dosage: RECEIVED THREE CYCLES; PART OF HIGH-DOSE BEAM REGIMEN, UNKNOWN
     Route: 065
  6. PREDNISOLONE. [Suspect]
     Active Substance: PREDNISOLONE
     Indication: MANTLE CELL LYMPHOMA STAGE IV
     Dosage: RECEIVED THREE CYCLES; PART OF MAXI-CHOP REGIMEN, UNKNOWN
     Route: 065
  7. DOXORUBICIN [Suspect]
     Active Substance: DOXORUBICIN
     Indication: MANTLE CELL LYMPHOMA STAGE IV
     Dosage: RECEIVED THREE CYCLES; PART OF MAXI-CHOP REGIMEN, UNKNOWN
     Route: 065
  8. ETOPOSIDE. [Suspect]
     Active Substance: ETOPOSIDE
     Indication: MANTLE CELL LYMPHOMA STAGE IV
     Dosage: RECEIVED THREE CYCLES; PART OF HIGH-DOSE BEAM REGIMEN, UNKNOWN
     Route: 065
  9. VINCRISTINE [Suspect]
     Active Substance: VINCRISTINE
     Indication: MANTLE CELL LYMPHOMA STAGE IV
     Dosage: RECEIVED THREE CYCLES; PART OF MAXI-CHOP REGIMEN, UNKNOWN
     Route: 065
  10. ADALIMUMAB [Suspect]
     Active Substance: ADALIMUMAB
     Indication: PSORIASIS
     Dosage: UNKNOWN
     Route: 065
  11. RITUXIMAB. [Suspect]
     Active Substance: RITUXIMAB
     Indication: MANTLE CELL LYMPHOMA STAGE IV
     Dosage: RECEIVED THREE CYCLES, UNKNOWN
     Route: 065

REACTIONS (13)
  - Aspergillus infection [Recovered/Resolved]
  - Thrombocytopenia [Unknown]
  - Psoriatic arthropathy [Recovered/Resolved]
  - Psoriasis [Recovering/Resolving]
  - Retinal haemorrhage [Recovered/Resolved]
  - Mantle cell lymphoma stage IV [Recovered/Resolved]
  - Hepatic infection fungal [Recovered/Resolved]
  - Pancytopenia [Recovering/Resolving]
  - Product use in unapproved indication [Unknown]
  - Bronchopulmonary aspergillosis [Recovered/Resolved]
  - Febrile neutropenia [Recovered/Resolved]
  - Lymphopenia [Unknown]
  - Herpes zoster [Recovered/Resolved]

NARRATIVE: CASE EVENT DATE: 2016
